FAERS Safety Report 10725375 (Version 1)
Quarter: 2015Q1

REPORT INFORMATION
  Report Type: Report from Study
  Country: FR (occurrence: FR)
  Receive Date: 20150121
  Receipt Date: 20150121
  Transmission Date: 20150721
  Serious: Yes (Other)
  Sender: FDA-Public Use
  Company Number: FR-ROCHE-1497577

PATIENT

DRUGS (1)
  1. VEMURAFENIB [Suspect]
     Active Substance: VEMURAFENIB
     Indication: METASTATIC MALIGNANT MELANOMA
     Route: 065

REACTIONS (12)
  - Photosensitivity reaction [Recovered/Resolved]
  - Drug reaction with eosinophilia and systemic symptoms [Recovered/Resolved]
  - Keratoacanthoma [Recovered/Resolved]
  - Eosinophilia [Recovered/Resolved]
  - Renal failure [Unknown]
  - Influenza like illness [Unknown]
  - Stevens-Johnson syndrome [Recovered/Resolved]
  - Rash maculo-papular [Recovered/Resolved]
  - Hyperkeratosis [Recovered/Resolved]
  - Hepatocellular injury [Unknown]
  - Lymphoma [Unknown]
  - Papilloma [Recovered/Resolved]
